FAERS Safety Report 5311053-0 (Version None)
Quarter: 2007Q2

REPORT INFORMATION
  Report Type: 
  Country: None (occurrence: None)
  Receive Date: 20070430
  Receipt Date: 20070426
  Transmission Date: 20071010
  Serious: Yes (Hospitalization)
  Sender: FDA-Public Use
  Company Number: US-JNJFOC-20070404287

PATIENT
  Age: 11 Year
  Sex: Male

DRUGS (4)
  1. TOPAMAX [Suspect]
     Dosage: (2-15 MG CAPSULES AM AND 3- 15 MG CAPSULES PM),
     Route: 048
  2. TOPAMAX [Suspect]
     Indication: EPILEPSY
     Dosage: 2- 50 MG TABLETS AM AND 3- 50 MG TABLETS PM
     Route: 048
  3. ZANAFLEX [Concomitant]
  4. KLONIPIN [Concomitant]

REACTIONS (4)
  - ACCIDENTAL OVERDOSE [None]
  - DRUG DISPENSING ERROR [None]
  - HYPOTHERMIA [None]
  - LETHARGY [None]
